FAERS Safety Report 5041021-8 (Version None)
Quarter: 2006Q2

REPORT INFORMATION
  Report Type: 
  Country: None (occurrence: None)
  Receive Date: 20060630
  Receipt Date: 20060630
  Transmission Date: 20061013
  Serious: Yes (Hospitalization)
  Sender: FDA-Public Use
  Company Number: None

PATIENT
  Age: 78 Year
  Sex: Male

DRUGS (2)
  1. VELCADE [Suspect]
     Indication: MANTLE CELL LYMPHOMA
     Dosage: 1.3 MG/M2 IV DAY 1 + 4 OF 21 DAY CYCLE
     Route: 042
  2. R-CHOP [Suspect]
     Indication: MANTLE CELL LYMPHOMA
     Dosage: DAY 1 OF 21 DAY CYCLE

REACTIONS (3)
  - PLEURAL EFFUSION [None]
  - RESPIRATORY DISTRESS [None]
  - WHITE BLOOD CELL COUNT INCREASED [None]
